FAERS Safety Report 4269664-X (Version None)
Quarter: 2004Q1

REPORT INFORMATION
  Report Type: 
  Country: None (occurrence: None)
  Receive Date: 20040109
  Receipt Date: 20040105
  Transmission Date: 20041129
  Serious: Yes (Other)
  Sender: FDA-Public Use
  Company Number: 2003151917US

PATIENT
  Age: 83 Year
  Sex: Male
  Weight: 78 kg

DRUGS (4)
  1. XALATAN [Suspect]
     Indication: RETINAL OEDEMA
     Dosage: OPHTHALMIC
     Route: 047
     Dates: start: 20030204, end: 20030208
  2. COSOPT [Concomitant]
  3. FOLIC ACID [Concomitant]
  4. ASPIRINA INFANTIL [Concomitant]

REACTIONS (6)
  - CONDITION AGGRAVATED [None]
  - EYE HAEMORRHAGE [None]
  - INTRAOCULAR PRESSURE INCREASED [None]
  - RETINAL OEDEMA [None]
  - RETINAL VASCULAR OCCLUSION [None]
  - VISION BLURRED [None]
